APPROVED DRUG PRODUCT: NORDETTE-21
Active Ingredient: ETHINYL ESTRADIOL; LEVONORGESTREL
Strength: 0.03MG;0.15MG
Dosage Form/Route: TABLET;ORAL-21
Application: N018668 | Product #001
Applicant: TEVA BRANDED PHARMACEUTICAL PRODUCTS R AND D INC
Approved: May 10, 1982 | RLD: No | RS: No | Type: DISCN